FAERS Safety Report 10060858 (Version 3)
Quarter: 2014Q3

REPORT INFORMATION
  Report Type: Spontaneous
  Country: US (occurrence: US)
  Receive Date: 20140404
  Receipt Date: 20140723
  Transmission Date: 20150326
  Serious: Yes (Death, Hospitalization)
  Sender: FDA-Public Use
  Company Number: US-ACTELION-A-US2014-96372

PATIENT
  Age: 69 Year
  Sex: Female

DRUGS (3)
  1. REMODULIN [Suspect]
     Active Substance: TREPROSTINIL
     Dosage: 33 NG/KG, PER MIN
  2. OPSUMIT [Suspect]
     Active Substance: MACITENTAN
     Indication: PULMONARY ARTERIAL HYPERTENSION
     Dosage: 10 MG, QD
     Route: 048
     Dates: start: 20140120
  3. ADCIRCA [Concomitant]
     Active Substance: TADALAFIL

REACTIONS (10)
  - Hypotension [Unknown]
  - Fluid overload [Unknown]
  - Sepsis [Fatal]
  - Pneumonia [Unknown]
  - Multi-organ failure [Fatal]
  - Dialysis [Unknown]
  - Scleroderma [Fatal]
  - Pulmonary arterial hypertension [Fatal]
  - Renal failure acute [Unknown]
  - Disease progression [Fatal]

NARRATIVE: CASE EVENT DATE: 20140328
